FAERS Safety Report 16939521 (Version 2)
Quarter: 2019Q4

REPORT INFORMATION
  Report Type: Spontaneous
  Country: FR (occurrence: FR)
  Receive Date: 20191021
  Receipt Date: 20191219
  Transmission Date: 20200122
  Serious: Yes (Death)
  Sender: FDA-Public Use
  Company Number: FR-SUN PHARMACEUTICAL INDUSTRIES LTD-2019RR-224228

PATIENT
  Age: 90 Year
  Sex: Female
  Weight: 64 kg

DRUGS (3)
  1. ASPEGIC [ACETYLSALICYLATE LYSINE] [Suspect]
     Active Substance: ASPIRIN DL-LYSINE
     Indication: THROMBOSIS PROPHYLAXIS
     Dosage: 160 MILLIGRAM, DAILY
     Route: 048
     Dates: start: 20190427, end: 20190429
  2. ENOXAPARINE SODIQUE ((MAMMIFERE/PORC/MUQUEUSE INTESTINALE)) [Suspect]
     Active Substance: ENOXAPARIN SODIUM
     Indication: ATRIAL FIBRILLATION
     Dosage: 4000 INTERNATIONAL UNIT, QD
     Route: 058
     Dates: start: 20190427, end: 20190429
  3. ATORVASTATIN [Suspect]
     Active Substance: ATORVASTATIN
     Indication: DYSLIPIDAEMIA
     Dosage: 40 MILLIGRAM, DAILY
     Route: 048

REACTIONS (2)
  - Rectal haemorrhage [Fatal]
  - Haemoptysis [Fatal]

NARRATIVE: CASE EVENT DATE: 20190504
